FAERS Safety Report 4898822-6 (Version None)
Quarter: 2006Q1

REPORT INFORMATION
  Report Type: 
  Country: None (occurrence: None)
  Receive Date: 20060202
  Receipt Date: 20060131
  Transmission Date: 20060701
  Serious: Yes (Hospitalization)
  Sender: FDA-Public Use
  Company Number: US-GLAXOSMITHKLINE-A0591726A

PATIENT
  Age: 74 Year
  Sex: Female

DRUGS (5)
  1. REQUIP [Suspect]
     Indication: RESTLESS LEGS SYNDROME
     Dosage: .25MG PER DAY
     Route: 048
     Dates: start: 20060101
  2. SYNTHROID [Concomitant]
  3. TOPROL-XL [Concomitant]
  4. ACTONEL [Concomitant]
  5. BENICAR [Concomitant]

REACTIONS (5)
  - DIZZINESS [None]
  - HALLUCINATION [None]
  - HYPERHIDROSIS [None]
  - INCOHERENT [None]
  - NAUSEA [None]
